FAERS Safety Report 15591374 (Version 3)
Quarter: 2019Q2

REPORT INFORMATION
  Report Type: Report from Study
  Country: JP (occurrence: JP)
  Receive Date: 20181107
  Receipt Date: 20190608
  Transmission Date: 20190711
  Serious: Yes (Death)
  Sender: FDA-Public Use
  Company Number: JP-AMGEN-JPNSP2018157909

PATIENT
  Age: 87 Year
  Sex: Female

DRUGS (1)
  1. DARBEPOETIN ALFA [Suspect]
     Active Substance: DARBEPOETIN ALFA
     Indication: MYELODYSPLASTIC SYNDROME
     Dosage: 120 MICROGRAM, Q2MO
     Route: 065
     Dates: start: 20180323, end: 20180914

REACTIONS (2)
  - Gallbladder cancer [Fatal]
  - Cholangiocarcinoma [Fatal]
